FAERS Safety Report 7693678-0 (Version None)
Quarter: 2011Q3

REPORT INFORMATION
  Report Type: 
  Country: None (occurrence: None)
  Receive Date: 20110819
  Receipt Date: 20110816
  Transmission Date: 20111222
  Serious: Yes (Other)
  Sender: FDA-Public Use
  Company Number: FR-AMGEN-FRASP2011039523

PATIENT
  Age: 22 Year
  Sex: Female

DRUGS (2)
  1. NEUPOGEN [Suspect]
     Indication: NEUTROPENIA
  2. NEUPOGEN [Suspect]
     Indication: CYCLIC NEUTROPENIA
     Dosage: UNK UNK, 2 TIMES/WK

REACTIONS (3)
  - MOUTH ULCERATION [None]
  - CYCLIC NEUTROPENIA [None]
  - PREGNANCY [None]
